FAERS Safety Report 7214778-5 (Version None)
Quarter: 2011Q1

REPORT INFORMATION
  Report Type: 
  Country: None (occurrence: None)
  Receive Date: 20110107
  Receipt Date: 20100323
  Transmission Date: 20110831
  Serious: No
  Sender: FDA-Public Use
  Company Number: A0843899A

PATIENT

DRUGS (1)
  1. LOVAZA [Suspect]
     Route: 065

REACTIONS (1)
  - MEDICATION RESIDUE [None]
